FAERS Safety Report 21452776 (Version 4)
Quarter: 2022Q4

REPORT INFORMATION
  Report Type: Report from Study
  Country: BE (occurrence: None)
  Receive Date: 20221013
  Receipt Date: 20221213
  Transmission Date: 20230113
  Serious: Yes (Hospitalization)
  Sender: FDA-Public Use
  Company Number: BE-ROCHE-3193686

PATIENT
  Age: 86 Year
  Sex: Female
  Weight: 83 kg

DRUGS (48)
  1. OBINUTUZUMAB [Suspect]
     Active Substance: OBINUTUZUMAB
     Indication: B-cell lymphoma
     Dosage: ON 05/JUL/2022, SHE RECEIVED MOST RECENT DOSE 1000 MG OF STUDY DRUG OBINUTUZUMAB PRIOR TO SAE/AE.
     Route: 042
     Dates: start: 20220705
  2. GLOFITAMAB [Suspect]
     Active Substance: GLOFITAMAB
     Indication: B-cell lymphoma
     Dosage: ON 07/SEP/2022, SHE RECEIVED MOST RECENT DOSE 30 MG OF STUDY DRUG GLOFITAMAB PRIOR TO SAE/AE.
     Route: 042
     Dates: start: 20220726
  3. GLOFITAMAB [Suspect]
     Active Substance: GLOFITAMAB
     Indication: B-cell lymphoma
     Dosage: ON 12/JUL/2022 AND 27/SEP/2022, SHE RECEIVED MOST RECENT DOSE 60 MG OF STUDY DRUG GLOFITAMAB PRIOR T
     Route: 058
     Dates: start: 20220712
  4. DEXAMETHASONE [Concomitant]
     Active Substance: DEXAMETHASONE
     Route: 042
     Dates: start: 20220907, end: 20220907
  5. DEXAMETHASONE [Concomitant]
     Active Substance: DEXAMETHASONE
     Route: 042
     Dates: start: 20220927, end: 20220927
  6. DEXAMETHASONE [Concomitant]
     Active Substance: DEXAMETHASONE
     Route: 042
     Dates: start: 20220712, end: 20220927
  7. DEXAMETHASONE [Concomitant]
     Active Substance: DEXAMETHASONE
     Route: 042
     Dates: start: 20220726, end: 20220726
  8. DEXAMETHASONE [Concomitant]
     Active Substance: DEXAMETHASONE
     Route: 042
     Dates: start: 20220719, end: 20220719
  9. DEXAMETHASONE [Concomitant]
     Active Substance: DEXAMETHASONE
     Route: 042
     Dates: start: 20220705, end: 20220705
  10. DEXAMETHASONE [Concomitant]
     Active Substance: DEXAMETHASONE
     Route: 042
     Dates: start: 20221019, end: 20221019
  11. CLEMASTINE FUMARATE [Concomitant]
     Active Substance: CLEMASTINE FUMARATE
     Route: 042
     Dates: start: 20220907, end: 20220907
  12. CLEMASTINE FUMARATE [Concomitant]
     Active Substance: CLEMASTINE FUMARATE
     Route: 042
     Dates: start: 20220927, end: 20220927
  13. CLEMASTINE FUMARATE [Concomitant]
     Active Substance: CLEMASTINE FUMARATE
     Route: 042
     Dates: start: 20220712, end: 20220712
  14. CLEMASTINE FUMARATE [Concomitant]
     Active Substance: CLEMASTINE FUMARATE
     Route: 042
     Dates: start: 20220726, end: 20220907
  15. CLEMASTINE FUMARATE [Concomitant]
     Active Substance: CLEMASTINE FUMARATE
     Route: 042
     Dates: start: 20220705, end: 20220705
  16. CLEMASTINE FUMARATE [Concomitant]
     Active Substance: CLEMASTINE FUMARATE
     Route: 042
     Dates: start: 20220719, end: 20220719
  17. CLEMASTINE FUMARATE [Concomitant]
     Active Substance: CLEMASTINE FUMARATE
     Route: 042
     Dates: start: 20221019, end: 20221019
  18. ACETAMINOPHEN [Concomitant]
     Active Substance: ACETAMINOPHEN
     Indication: Injection site reaction
     Route: 048
     Dates: start: 20220907, end: 20220907
  19. ACETAMINOPHEN [Concomitant]
     Active Substance: ACETAMINOPHEN
     Route: 048
     Dates: start: 20220927, end: 20220927
  20. ACETAMINOPHEN [Concomitant]
     Active Substance: ACETAMINOPHEN
     Route: 048
     Dates: start: 20220712, end: 20220712
  21. ACETAMINOPHEN [Concomitant]
     Active Substance: ACETAMINOPHEN
     Route: 048
     Dates: start: 20220726, end: 20220726
  22. ACETAMINOPHEN [Concomitant]
     Active Substance: ACETAMINOPHEN
     Route: 048
     Dates: start: 20220719, end: 20220719
  23. ACETAMINOPHEN [Concomitant]
     Active Substance: ACETAMINOPHEN
     Route: 048
     Dates: start: 20221019, end: 20221019
  24. ACYCLOVIR [Concomitant]
     Active Substance: ACYCLOVIR
     Indication: Herpes zoster
     Route: 048
     Dates: start: 20220223
  25. BEFACT FORTE [Concomitant]
     Route: 048
     Dates: start: 20180125
  26. BISOPROLOL [Concomitant]
     Active Substance: BISOPROLOL
     Indication: Hypertension
     Route: 048
     Dates: start: 2012
  27. BUMETANIDE [Concomitant]
     Active Substance: BUMETANIDE
     Indication: Oedema peripheral
     Route: 048
     Dates: start: 20200311, end: 20220927
  28. CALCIUM CARBONATE\CHOLECALCIFEROL [Concomitant]
     Active Substance: CALCIUM CARBONATE\CHOLECALCIFEROL
     Indication: Osteoporosis
     Route: 048
     Dates: start: 20190721
  29. GLIQUIDONE [Concomitant]
     Active Substance: GLIQUIDONE
     Indication: Type 2 diabetes mellitus
     Route: 048
     Dates: start: 20201211
  30. HYDROCORTISONE [Concomitant]
     Active Substance: HYDROCORTISONE
     Indication: Adrenal insufficiency
     Route: 048
     Dates: start: 20220223, end: 20220715
  31. IRBESARTAN [Concomitant]
     Active Substance: IRBESARTAN
     Indication: Hypertension
     Route: 048
     Dates: start: 2012
  32. LEVOTHYROXINE [Concomitant]
     Active Substance: LEVOTHYROXINE
     Indication: Hypothyroidism
     Route: 048
     Dates: start: 20201211
  33. LIDOCAINE [Concomitant]
     Active Substance: LIDOCAINE
     Indication: Mucosal inflammation
     Dosage: 1 OTHER
     Route: 048
     Dates: start: 20220223
  34. LYRICA [Concomitant]
     Active Substance: PREGABALIN
     Route: 048
     Dates: start: 2015
  35. MOVICOL [Concomitant]
     Active Substance: POLYETHYLENE GLYCOL 3350\POTASSIUM CHLORIDE\SODIUM BICARBONATE\SODIUM CHLORIDE
     Indication: Constipation
     Dosage: 1 OTHER
     Route: 048
     Dates: start: 20220715
  36. OMEPRAZOLE [Concomitant]
     Active Substance: OMEPRAZOLE
     Indication: Gastric ulcer
     Route: 048
     Dates: start: 20220223
  37. PAXLOVID [Concomitant]
     Active Substance: NIRMATRELVIR\RITONAVIR
     Indication: COVID-19
     Route: 048
     Dates: start: 20220615, end: 20220619
  38. LINAGLIPTIN [Concomitant]
     Active Substance: LINAGLIPTIN
     Indication: Type 2 diabetes mellitus
     Route: 048
     Dates: start: 20140724
  39. ALLOPURINOL [Concomitant]
     Active Substance: ALLOPURINOL
     Indication: Tumour lysis syndrome
     Route: 048
     Dates: start: 20220223
  40. BACTRIM [Concomitant]
     Active Substance: SULFAMETHOXAZOLE\TRIMETHOPRIM
     Indication: Pneumocystis jirovecii infection
     Route: 048
     Dates: start: 20220722
  41. AMLODIPINE [Concomitant]
     Active Substance: AMLODIPINE BESYLATE
     Indication: Hypertension
     Route: 048
     Dates: start: 20220715, end: 20220930
  42. AMLODIPINE [Concomitant]
     Active Substance: AMLODIPINE BESYLATE
     Route: 048
     Dates: start: 20220715, end: 20220715
  43. XYLOCAINE [Concomitant]
     Active Substance: LIDOCAINE HYDROCHLORIDE
     Dates: start: 20220704, end: 20220704
  44. ENOXAPARIN SODIUM [Concomitant]
     Active Substance: ENOXAPARIN SODIUM
     Route: 058
     Dates: start: 20220712, end: 20220713
  45. INSULINE HUMAINE [Concomitant]
     Indication: Type 2 diabetes mellitus
     Route: 058
     Dates: start: 20220705, end: 20221003
  46. ACTOSOLV [Concomitant]
     Indication: Device occlusion
     Route: 042
     Dates: start: 20220720, end: 20220720
  47. POTASSIUM PERMANGANATE [Concomitant]
     Active Substance: POTASSIUM PERMANGANATE
     Indication: Erythema
     Route: 061
     Dates: start: 20220817
  48. STAPHYCID [Concomitant]
     Indication: Erysipelas
     Route: 048
     Dates: start: 20220823, end: 20220901

REACTIONS (3)
  - Injection site reaction [Recovered/Resolved]
  - Cytokine release syndrome [Recovered/Resolved]
  - Injection site reaction [Not Recovered/Not Resolved]

NARRATIVE: CASE EVENT DATE: 20220713
